FAERS Safety Report 8555742-3 (Version None)
Quarter: 2012Q3

REPORT INFORMATION
  Report Type: 
  Country: None (occurrence: None)
  Receive Date: 20120801
  Receipt Date: 20120723
  Transmission Date: 20120928
  Serious: Yes (Hospitalization)
  Sender: FDA-Public Use
  Company Number: FR-009507513-1207FRA011369

PATIENT

DRUGS (5)
  1. SINGULAIR [Suspect]
     Dosage: UNK
     Route: 048
     Dates: end: 20120501
  2. CEFPODOXIME PROXETIL [Concomitant]
     Dosage: UNK
     Dates: start: 20120423, end: 20120427
  3. FEXOFENADINE HCL [Concomitant]
  4. SYMBICORT [Concomitant]
     Dosage: UNK
  5. ACETAMINOPHEN [Concomitant]
     Dosage: UNK
     Dates: start: 20120423, end: 20120427

REACTIONS (1)
  - VASCULAR PURPURA [None]
